FAERS Safety Report 4678604-0 (Version None)
Quarter: 2005Q2

REPORT INFORMATION
  Report Type: 
  Country: None (occurrence: None)
  Receive Date: 20050527
  Receipt Date: 20050517
  Transmission Date: 20051028
  Serious: Yes (Disabling)
  Sender: FDA-Public Use
  Company Number: 2005-05-1273

PATIENT
  Age: 56 Year
  Sex: Female

DRUGS (6)
  1. DIPROSPAN (BETAMETHASONE SODIUM PHOSPHATE/DIPROPIONATE INJECTABLE SUSP [Suspect]
     Indication: OSTEOCHONDROSIS
     Dosage: 1 ML INTRAMUSCULAR
     Route: 030
     Dates: start: 20050317, end: 20050317
  2. SODUM CHLORIDE INJECTABLE [Suspect]
     Indication: OSTEOCHONDROSIS
     Dosage: 10 MG INTRAMUSCULAR
     Route: 030
     Dates: start: 20050317, end: 20050317
  3. LIDOCAINE [Suspect]
     Indication: OSTEOCHONDROSIS
     Dosage: 6 ML INTRAMUSCULAR
     Route: 030
     Dates: start: 20050317, end: 20050317
  4. MOVALIS (MELOXICAM) [Concomitant]
  5. ACTOVEGIN [Concomitant]
  6. 10%NACL [Concomitant]

REACTIONS (6)
  - DRUG TOXICITY [None]
  - HYPERSENSITIVITY [None]
  - INJECTION SITE INFLAMMATION [None]
  - INJECTION SITE OEDEMA [None]
  - INJECTION SITE PAIN [None]
  - POOR QUALITY DRUG ADMINISTERED [None]
